FAERS Safety Report 5119881-1 (Version None)
Quarter: 2006Q3

REPORT INFORMATION
  Report Type: 
  Country: None (occurrence: None)
  Receive Date: 20060929
  Receipt Date: 20060914
  Transmission Date: 20061208
  Serious: No
  Sender: FDA-Public Use
  Company Number: TPA2006A01593

PATIENT
  Age: 53 Year
  Sex: Female
  Weight: 58.9676 kg

DRUGS (3)
  1. ROZEREM [Suspect]
     Indication: INSOMNIA
     Dosage: 16 MG, QHS, PER ORAL
     Route: 048
     Dates: start: 20060905, end: 20060910
  2. LUNESTA (ESCOPICLONE) [Concomitant]
  3. CELEXA [Concomitant]

REACTIONS (1)
  - DRUG INEFFECTIVE [None]
